FAERS Safety Report 10598372 (Version 1)
Quarter: 2014Q4

REPORT INFORMATION
  Report Type: Other
  Country: GB (occurrence: GB)
  Receive Date: 20141121
  Receipt Date: 20141121
  Transmission Date: 20150529
  Serious: Yes (Hospitalization, Other)
  Sender: FDA-Public Use
  Company Number: GB-MYLANLABS-2014M1010451

PATIENT

DRUGS (2)
  1. TERBINAFINE [Suspect]
     Active Substance: TERBINAFINE
     Indication: FUNGAL INFECTION
     Dosage: UNK
     Route: 061
  2. TERBINAFINE [Suspect]
     Active Substance: TERBINAFINE
     Indication: FUNGAL INFECTION
     Dosage: 250 MG, QD
     Route: 048
     Dates: start: 20141021

REACTIONS (5)
  - Peripheral swelling [Unknown]
  - Erythema [Unknown]
  - Skin exfoliation [Unknown]
  - Inflammation [Unknown]
  - Skin reaction [Not Recovered/Not Resolved]

NARRATIVE: CASE EVENT DATE: 20141022
